FAERS Safety Report 7241229-7 (Version None)
Quarter: 2011Q1

REPORT INFORMATION
  Report Type: 
  Country: None (occurrence: None)
  Receive Date: 20110124
  Receipt Date: 20110114
  Transmission Date: 20110831
  Serious: Yes (Hospitalization)
  Sender: FDA-Public Use
  Company Number: A0790555A

PATIENT
  Age: 61 Year
  Sex: Male

DRUGS (1)
  1. AVANDIA [Suspect]
     Indication: TYPE 2 DIABETES MELLITUS
     Route: 048
     Dates: start: 20000701, end: 20070201

REACTIONS (10)
  - MYOCARDIAL ISCHAEMIA [None]
  - ATRIAL FIBRILLATION [None]
  - ATRIOVENTRICULAR BLOCK SECOND DEGREE [None]
  - ACUTE CORONARY SYNDROME [None]
  - CORONARY ARTERY DISEASE [None]
  - PULMONARY OEDEMA [None]
  - ANGINA UNSTABLE [None]
  - MYOCARDIAL INFARCTION [None]
  - CARDIAC FAILURE CONGESTIVE [None]
  - PERIPHERAL VASCULAR DISORDER [None]
